FAERS Safety Report 23482833 (Version 3)
Quarter: 2024Q1

REPORT INFORMATION
  Report Type: Report from Study
  Country: US (occurrence: None)
  Receive Date: 20240205
  Receipt Date: 20240223
  Transmission Date: 20240409
  Serious: Yes (Other)
  Sender: FDA-Public Use
  Company Number: 2024A023512

PATIENT
  Sex: Female

DRUGS (4)
  1. FARXIGA [Suspect]
     Active Substance: DAPAGLIFLOZIN PROPANEDIOL
     Route: 048
  2. OMEPRAZOLE [Suspect]
     Active Substance: OMEPRAZOLE
     Dosage: 20.0MG UNKNOWN
     Route: 048
  3. METFORMIN [Suspect]
     Active Substance: METFORMIN HYDROCHLORIDE
  4. PENICILLIN [Suspect]
     Active Substance: PENICILLIN

REACTIONS (26)
  - Atrioventricular block complete [Unknown]
  - Diabetic neuropathy [Unknown]
  - Lumbar vertebral fracture [Unknown]
  - Coronary artery disease [Unknown]
  - Mitral valve incompetence [Unknown]
  - Drug hypersensitivity [Unknown]
  - Pruritus [Unknown]
  - Urticaria [Unknown]
  - Depression [Unknown]
  - Type 2 diabetes mellitus [Unknown]
  - Myelodysplastic syndrome [Unknown]
  - Iron deficiency anaemia [Unknown]
  - Cellulitis [Unknown]
  - Essential hypertension [Unknown]
  - Oedema peripheral [Unknown]
  - Cardiomyopathy [Unknown]
  - Gastrooesophageal reflux disease [Unknown]
  - Oesophagitis [Unknown]
  - Aortic stenosis [Unknown]
  - Atrial fibrillation [Unknown]
  - Diabetic retinopathy [Unknown]
  - Hypertension [Unknown]
  - Hyperlipidaemia [Unknown]
  - Obesity [Unknown]
  - Abdominal hernia [Unknown]
  - Chronic kidney disease [Unknown]
